FAERS Safety Report 22249264 (Version 2)
Quarter: 2023Q2

REPORT INFORMATION
  Report Type: Spontaneous
  Country: US (occurrence: US)
  Receive Date: 20230425
  Receipt Date: 20230518
  Transmission Date: 20230721
  Serious: No
  Sender: FDA-Public Use
  Company Number: US-SANOFI-01582925

PATIENT
  Age: 27 Year
  Sex: Female
  Weight: 52.6 kg

DRUGS (5)
  1. LEMTRADA [Suspect]
     Active Substance: ALEMTUZUMAB
     Indication: Enteropathy-associated T-cell lymphoma
     Dosage: 3 MG, QD
     Route: 042
     Dates: start: 2021, end: 2021
  2. LEMTRADA [Suspect]
     Active Substance: ALEMTUZUMAB
     Dosage: 10 MG, QD, 9 DAYS
     Route: 042
     Dates: start: 2021, end: 2021
  3. LEMTRADA [Suspect]
     Active Substance: ALEMTUZUMAB
     Dosage: 3 MG, QD, FOR 1 DAY
     Route: 042
     Dates: start: 202208, end: 202208
  4. LEMTRADA [Suspect]
     Active Substance: ALEMTUZUMAB
     Dosage: 10 MG, QD, FOR 4 DAYS
     Route: 042
     Dates: start: 202208, end: 202208
  5. PREDNISONE [Concomitant]
     Active Substance: PREDNISONE
     Indication: Weight increased

REACTIONS (2)
  - Off label use [Unknown]
  - Maternal exposure before pregnancy [Unknown]

NARRATIVE: CASE EVENT DATE: 20210101
